FAERS Safety Report 10756607 (Version 1)
Quarter: 2015Q1

REPORT INFORMATION
  Report Type: Spontaneous
  Country: US (occurrence: US)
  Receive Date: 20150202
  Receipt Date: 20150202
  Transmission Date: 20150721
  Serious: Yes (Other)
  Sender: FDA-Public Use
  Company Number: US-GLAXOSMITHKLINE-US2015009192

PATIENT
  Sex: Male

DRUGS (3)
  1. LAMOTRIGINE PROLONGED-RELEASE TABLET [Suspect]
     Active Substance: LAMOTRIGINE
     Indication: PETIT MAL EPILEPSY
     Dosage: 200 MG, QD
     Route: 048
     Dates: start: 2011, end: 2013
  2. LEVETIRACETAM. [Concomitant]
     Active Substance: LEVETIRACETAM
  3. LAMICTAL XR [Suspect]
     Active Substance: LAMOTRIGINE
     Indication: PETIT MAL EPILEPSY
     Dosage: UNK
     Route: 048
     Dates: start: 2013

REACTIONS (2)
  - Hypoaesthesia [Recovered/Resolved]
  - Petit mal epilepsy [Recovered/Resolved]
